FAERS Safety Report 21084637 (Version 3)
Quarter: 2023Q2

REPORT INFORMATION
  Report Type: Spontaneous
  Country: US (occurrence: US)
  Receive Date: 20220714
  Receipt Date: 20230509
  Transmission Date: 20230721
  Serious: Yes (Hospitalization, Other)
  Sender: FDA-Public Use
  Company Number: US-PFIZER INC-202200957364

PATIENT
  Age: 57 Year
  Sex: Female

DRUGS (7)
  1. IBRANCE [Suspect]
     Active Substance: PALBOCICLIB
     Dosage: 100 MG, CYCLIC (DAILY FOR 21 DAYS, FOLLOWED BY 7 DAYS OFF)
     Dates: start: 20220614, end: 2022
  2. IBRANCE [Suspect]
     Active Substance: PALBOCICLIB
     Dosage: 75 MG, DAILY, (DAILY WITH OR WITHOUT FOOD FOR 21 DAYS, FOLLOWED BY 7 DAYS OFF)
     Dates: start: 20220614
  3. ALPRAZOLAM [Concomitant]
     Active Substance: ALPRAZOLAM
     Dosage: 1 MG
  4. EMERGEN-C [Concomitant]
     Active Substance: VITAMINS
     Dosage: 1000 MG
  5. FASLODEX [Concomitant]
     Active Substance: FULVESTRANT
     Dosage: 250 MG
  6. MIRALAX [Concomitant]
     Active Substance: POLYETHYLENE GLYCOL 3350
     Dosage: 17 G/DO
  7. OMEPRAZOLE [Concomitant]
     Active Substance: OMEPRAZOLE
     Dosage: 40 MG

REACTIONS (4)
  - Nerve compression [Unknown]
  - White blood cell count decreased [Unknown]
  - Neoplasm progression [Unknown]
  - Back pain [Unknown]

NARRATIVE: CASE EVENT DATE: 20220101
